FAERS Safety Report 25865304 (Version 1)
Quarter: 2025Q3

REPORT INFORMATION
  Report Type: Spontaneous
  Country: US (occurrence: None)
  Receive Date: 20250930
  Receipt Date: 20250930
  Transmission Date: 20251021
  Serious: Yes (Other)
  Sender: FDA-CTU
  Company Number: None

PATIENT
  Age: 53 Year
  Sex: Female
  Weight: 79.65 kg

DRUGS (1)
  1. TRELEGY ELLIPTA [Suspect]
     Active Substance: FLUTICASONE FUROATE\UMECLIDINIUM BROMIDE\VILANTEROL TRIFENATATE
     Indication: Respiratory disorder
     Dosage: OTHER STRENGTH : NONE;?OTHER QUANTITY : 1 PUFF(S);?FREQUENCY : DAILY;?
     Route: 048
     Dates: start: 20250822, end: 20250822

REACTIONS (4)
  - Taste disorder [None]
  - Parosmia [None]
  - Emotional distress [None]
  - Mental disorder [None]

NARRATIVE: CASE EVENT DATE: 20250822
